FAERS Safety Report 9885604 (Version 1)
Quarter: 2014Q1

REPORT INFORMATION
  Report Type: Spontaneous
  Country: US (occurrence: US)
  Receive Date: 20140210
  Receipt Date: 20140210
  Transmission Date: 20141002
  Serious: No
  Sender: FDA-Public Use
  Company Number: US-GILEAD-2012-0052704

PATIENT
  Age: 51 Year
  Sex: Female
  Weight: 47.62 kg

DRUGS (9)
  1. VIREAD [Suspect]
     Indication: CHRONIC HEPATITIS B
     Dosage: 300 MG, QD
     Route: 048
     Dates: start: 20120208
  2. PAXIL [Suspect]
     Indication: DEPRESSION
     Dosage: UNK
     Route: 048
  3. TRAMADOL [Concomitant]
     Indication: PAIN
     Route: 048
  4. PHENERGAN                          /00033001/ [Concomitant]
     Indication: NAUSEA
     Route: 048
  5. MESALAMINE [Concomitant]
     Indication: CROHN^S DISEASE
     Route: 048
  6. IRON [Concomitant]
     Indication: ANAEMIA
     Route: 048
  7. CALCIUM + VITAMIN D [Concomitant]
     Route: 048
  8. XANAX [Concomitant]
     Indication: ANXIETY
     Route: 048
  9. MVI [Concomitant]
     Route: 048

REACTIONS (1)
  - Hypokalaemia [Recovering/Resolving]
